FAERS Safety Report 4372387-X (Version None)
Quarter: 2004Q2

REPORT INFORMATION
  Report Type: 
  Country: None (occurrence: None)
  Receive Date: 20040602
  Receipt Date: 20040519
  Transmission Date: 20050107
  Serious: Yes (Other)
  Sender: FDA-Public Use
  Company Number: 04-05-0739

PATIENT
  Age: 48 Year
  Sex: Male

DRUGS (3)
  1. BECLOMETHASONE DIPROPIONATE [Suspect]
     Indication: SINUSITIS
     Dosage: 2 SPRAYS PRN NASAL
     Route: 045
  2. NASACORT [Suspect]
     Indication: SINUSITIS
     Dosage: NASAL
     Route: 045
  3. DEXA-RHINASPRAY [Suspect]
     Indication: SINUSITIS
     Dosage: NASAL
     Route: 045

REACTIONS (7)
  - ABDOMINAL PAIN [None]
  - DRUG EFFECT DECREASED [None]
  - IMPAIRED WORK ABILITY [None]
  - MEDICATION ERROR [None]
  - MUSCLE SPASMS [None]
  - OSTEONECROSIS [None]
  - SLEEP DISORDER DUE TO GENERAL MEDICAL CONDITION, INSOMNIA TYPE [None]
